FAERS Safety Report 15677606 (Version 8)
Quarter: 2019Q3

REPORT INFORMATION
  Report Type: Report from Study
  Country: US (occurrence: US)
  Receive Date: 20181130
  Receipt Date: 20190924
  Transmission Date: 20191004
  Serious: Yes (Disabling)
  Sender: FDA-Public Use
  Company Number: US-ACTELION-A-NJ2018-180517

PATIENT
  Age: 65 Year
  Sex: Female
  Weight: 119.27 kg

DRUGS (3)
  1. UPTRAVI [Suspect]
     Active Substance: SELEXIPAG
     Dosage: 400 MCG, BID
     Route: 048
  2. OPSUMIT [Suspect]
     Active Substance: MACITENTAN
     Indication: PULMONARY ARTERIAL HYPERTENSION
     Dosage: 10 MG, QD
     Route: 048
     Dates: start: 20171002
  3. UPTRAVI [Suspect]
     Active Substance: SELEXIPAG
     Indication: PULMONARY ARTERIAL HYPERTENSION
     Dosage: 400 MCG, BID
     Route: 048

REACTIONS (36)
  - Arthritis [Unknown]
  - Neck pain [Unknown]
  - Malaise [Unknown]
  - Myalgia [Unknown]
  - Oedema peripheral [Unknown]
  - Visual impairment [Not Recovered/Not Resolved]
  - Insomnia [Unknown]
  - Arthralgia [Unknown]
  - Dyspnoea [Unknown]
  - Tooth extraction [Unknown]
  - Tendon rupture [Unknown]
  - Memory impairment [Unknown]
  - Thinking abnormal [Unknown]
  - Blood iron decreased [Unknown]
  - Ear pain [Unknown]
  - Musculoskeletal disorder [Not Recovered/Not Resolved]
  - Sensory disturbance [Unknown]
  - Tooth infection [Unknown]
  - Bronchitis [Unknown]
  - Musculoskeletal pain [Unknown]
  - Constipation [Unknown]
  - Peripheral swelling [Unknown]
  - Headache [Unknown]
  - Abdominal distension [Unknown]
  - Pain in extremity [Not Recovered/Not Resolved]
  - Glycosylated haemoglobin increased [Unknown]
  - Hair growth abnormal [Unknown]
  - Back pain [Unknown]
  - Drug intolerance [Unknown]
  - Dizziness [Unknown]
  - Pain in jaw [Unknown]
  - Dental caries [Not Recovered/Not Resolved]
  - Toothache [Unknown]
  - Rotator cuff syndrome [Unknown]
  - Weight increased [Unknown]
  - Dyspnoea exertional [Unknown]

NARRATIVE: CASE EVENT DATE: 201811
